FAERS Safety Report 8510217-2 (Version None)
Quarter: 2012Q3

REPORT INFORMATION
  Report Type: 
  Country: None (occurrence: None)
  Receive Date: 20120713
  Receipt Date: 20120703
  Transmission Date: 20120928
  Serious: Yes (Hospitalization, Other)
  Sender: FDA-Public Use
  Company Number: US-ABBOTT-12P-163-0953334-00

PATIENT
  Age: 60 Year
  Sex: Female

DRUGS (14)
  1. HUMIRA [Suspect]
     Indication: PSORIASIS
     Dates: start: 20120208
  2. BACLOFEN [Concomitant]
     Indication: BACK PAIN
  3. TRIAMCINOLONE [Concomitant]
     Indication: PSORIASIS
     Dosage: AT NIGHT TIME
     Route: 061
  4. ZANAFLEX [Concomitant]
     Indication: MUSCLE SPASMS
     Dosage: 2 IN AM, 1 IN AFTERNOON AND 1 AT NIGHT
  5. ELAVIL [Concomitant]
     Indication: INSOMNIA
     Dosage: 2 TABS IN EVENING
  6. CALCIPOTRIENE [Concomitant]
     Indication: PRODUCT USED FOR UNKNOWN INDICATION
     Dosage: DAY TIME
     Route: 061
  7. REMERON [Concomitant]
     Indication: INSOMNIA
     Dosage: 1 AT NIGHT
  8. REMERON [Concomitant]
     Indication: PAIN
  9. FOLIC ACID [Concomitant]
     Indication: BLOOD CHOLESTEROL
     Dosage: 1MG ONCE DAILY
  10. ULTRAM [Concomitant]
     Indication: BACK PAIN
     Dosage: 2 IN AM, 2 IN AFTERNOON, + 2 IN EVENING
  11. PERCOCET [Concomitant]
     Indication: BACK PAIN
  12. LYRICA [Concomitant]
     Indication: BACK PAIN
     Dosage: 1 IN AM AND 1 IN EVENING
  13. BACLOFEN [Concomitant]
     Indication: MUSCLE SPASMS
  14. LIPITOR [Concomitant]
     Indication: BLOOD CHOLESTEROL
     Dosage: 40MG ONCE DAILY

REACTIONS (5)
  - FEELING ABNORMAL [None]
  - WRIST FRACTURE [None]
  - FALL [None]
  - FEELING JITTERY [None]
  - PNEUMONIA [None]
